FAERS Safety Report 23047027 (Version 2)
Quarter: 2023Q4

REPORT INFORMATION
  Report Type: Spontaneous
  Country: DE (occurrence: None)
  Receive Date: 20231009
  Receipt Date: 20231019
  Transmission Date: 20240109
  Serious: Yes (Hospitalization)
  Sender: FDA-Public Use
  Company Number: 2023A225511

PATIENT
  Age: 74 Year
  Sex: Male

DRUGS (10)
  1. DAPAGLIFLOZIN [Suspect]
     Active Substance: DAPAGLIFLOZIN
     Indication: Type 2 diabetes mellitus
     Route: 048
     Dates: start: 20230703, end: 20230822
  2. CANDESARTAN [Concomitant]
     Active Substance: CANDESARTAN
     Dosage: 1-0-0 APPLICATION FOR A LONG TIME
  3. ATORVASTATIN [Concomitant]
     Active Substance: ATORVASTATIN
     Dosage: 0-0-0.5 APPLICATION FOR A LONG TIME
  4. CHOLECALCIFEROL [Concomitant]
     Active Substance: CHOLECALCIFEROL
     Dosage: EXTENDED USE
     Route: 048
  5. LERCANIDIPINE [Concomitant]
     Active Substance: LERCANIDIPINE
     Dosage: 0-0-1 RECENT APPLICATION
  6. TAMSULOSIN [Concomitant]
     Active Substance: TAMSULOSIN
     Dosage: 1-0-0 APPLICATION FOR A LONG TIME
  7. FIASP [Concomitant]
     Active Substance: INSULIN ASPART
     Dosage: EXTENDED USE
  8. OZEMPIC [Concomitant]
     Active Substance: SEMAGLUTIDE
     Dosage: 1X WEEK APPLICATION FOR A LONG TIME
  9. INSULIN DETEMIR [Concomitant]
     Active Substance: INSULIN DETEMIR
     Dosage: EXTENDED USE
  10. PREGABALIN [Concomitant]
     Active Substance: PREGABALIN
     Dosage: 1-0-1 RECENT APPLICATION

REACTIONS (4)
  - Pyrexia [Unknown]
  - Urinary incontinence [Unknown]
  - Genital infection male [Unknown]
  - Urinary tract infection [Unknown]

NARRATIVE: CASE EVENT DATE: 20230730
